FAERS Safety Report 17734756 (Version 3)
Quarter: 2021Q4

REPORT INFORMATION
  Report Type: Spontaneous
  Country: US (occurrence: None)
  Receive Date: 20200501
  Receipt Date: 20211130
  Transmission Date: 20220303
  Serious: Yes (Other)
  Sender: FDA-Public Use
  Company Number: 2020SE56770

PATIENT
  Age: 47 Year
  Sex: Male

DRUGS (28)
  1. PRILOSEC [Suspect]
     Active Substance: OMEPRAZOLE MAGNESIUM
     Indication: Gastrooesophageal reflux disease
     Route: 048
     Dates: start: 199001, end: 200012
  2. PRILOSEC [Suspect]
     Active Substance: OMEPRAZOLE MAGNESIUM
     Indication: Gastrooesophageal reflux disease
     Route: 048
     Dates: start: 1990
  3. PRILOSEC [Suspect]
     Active Substance: OMEPRAZOLE MAGNESIUM
     Indication: Gastrooesophageal reflux disease
     Dosage: OMEPRAZOLE GENERIC
     Route: 065
  4. PREVACID [Suspect]
     Active Substance: LANSOPRAZOLE
     Indication: Gastrooesophageal reflux disease
     Route: 065
     Dates: start: 199001, end: 200012
  5. PREVACID [Suspect]
     Active Substance: LANSOPRAZOLE
     Indication: Gastrooesophageal reflux disease
     Route: 065
     Dates: start: 1995
  6. TACROLIMUS [Concomitant]
     Active Substance: TACROLIMUS
     Indication: Prophylaxis against transplant rejection
     Dates: start: 2013
  7. ATORVASTATIN [Concomitant]
     Active Substance: ATORVASTATIN
     Indication: Blood cholesterol increased
     Dates: start: 2015
  8. LOSARTAN [Concomitant]
     Active Substance: LOSARTAN
     Indication: Nephropathy
     Dates: start: 2015
  9. LISINOPRIL [Concomitant]
     Active Substance: LISINOPRIL
  10. SULFAMETHOXAZOLE\TRIMETHOPRIM [Concomitant]
     Active Substance: SULFAMETHOXAZOLE\TRIMETHOPRIM
  11. PRAVASTATIN [Concomitant]
     Active Substance: PRAVASTATIN
  12. METOPROLOL SUCCINATE [Concomitant]
     Active Substance: METOPROLOL SUCCINATE
  13. AMLODIPINE [Concomitant]
     Active Substance: AMLODIPINE BESYLATE
  14. KETOCONAZOLE [Concomitant]
     Active Substance: KETOCONAZOLE
  15. TORSEMIDE [Concomitant]
     Active Substance: TORSEMIDE
  16. MYCOPHENOLIC ACID [Concomitant]
     Active Substance: MYCOPHENOLIC ACID
  17. ACYCLOVIR [Concomitant]
     Active Substance: ACYCLOVIR
  18. MUPIROCIN [Concomitant]
     Active Substance: MUPIROCIN
  19. GABAPENTIN [Concomitant]
     Active Substance: GABAPENTIN
  20. TIMOLOL [Concomitant]
     Active Substance: TIMOLOL
  21. PRAVASTATIN [Concomitant]
     Active Substance: PRAVASTATIN
  22. PREDNISONE [Concomitant]
     Active Substance: PREDNISONE
  23. TOPROL XL [Concomitant]
     Active Substance: METOPROLOL SUCCINATE
  24. DIFFERIN [Concomitant]
     Active Substance: ADAPALENE
  25. ALLOPURINOL [Concomitant]
     Active Substance: ALLOPURINOL
  26. ZESTRIL [Concomitant]
     Active Substance: LISINOPRIL
  27. PRAVACHOL [Concomitant]
     Active Substance: PRAVASTATIN SODIUM
  28. PROGRAF [Concomitant]
     Active Substance: TACROLIMUS

REACTIONS (3)
  - Chronic kidney disease [Not Recovered/Not Resolved]
  - End stage renal disease [Unknown]
  - Gastrooesophageal reflux disease [Not Recovered/Not Resolved]

NARRATIVE: CASE EVENT DATE: 20080101
